FAERS Safety Report 6726205-2 (Version None)
Quarter: 2010Q2

REPORT INFORMATION
  Report Type: 
  Country: None (occurrence: None)
  Receive Date: 20100514
  Receipt Date: 20100510
  Transmission Date: 20101027
  Serious: Yes (Other)
  Sender: FDA-Public Use
  Company Number: US-TEVA-234403USA

PATIENT
  Age: 62 Year
  Sex: Female

DRUGS (3)
  1. TAMOXIFEN CITRATE 20MG TABLETS [Suspect]
     Indication: BREAST CANCER
  2. ANASTROZOLE [Suspect]
  3. LETROZOLE [Suspect]

REACTIONS (1)
  - COLON CANCER [None]
